FAERS Safety Report 6400359-X (Version None)
Quarter: 2009Q4

REPORT INFORMATION
  Report Type: 
  Country: None (occurrence: None)
  Receive Date: 20091009
  Receipt Date: 20090504
  Transmission Date: 20100525
  Serious: No
  Sender: FDA-Public Use
  Company Number: DL2009273

PATIENT
  Age: 26 Year
  Sex: Female

DRUGS (5)
  1. MIFEPRISTONE TABLETS, 200 MG (DANCO LABS) [Suspect]
     Indication: ABORTION INDUCED
     Dosage: 200 MG, ORAL
     Route: 048
     Dates: start: 20090408
  2. MISOPROSTOL [Suspect]
     Indication: ABORTION INDUCED
     Dosage: 800 MC, BUCCAL
     Route: 002
     Dates: start: 20090409
  3. MISOPROSTOL [Suspect]
     Indication: ABORTION INDUCED
     Dosage: 800 MC, BUCCAL
     Route: 002
     Dates: start: 20090419
  4. MISOPROSTOL [Suspect]
     Indication: ABORTION INDUCED
     Dosage: 800 MC, BUCCAL
     Route: 002
     Dates: start: 20090420
  5. DOXYCYCLINE [Concomitant]

REACTIONS (1)
  - ABORTION INCOMPLETE [None]
